FAERS Safety Report 14675828 (Version 3)
Quarter: 2021Q1

REPORT INFORMATION
  Report Type: Spontaneous
  Country: US (occurrence: US)
  Receive Date: 20180323
  Receipt Date: 20210122
  Transmission Date: 20210419
  Serious: Yes (Other)
  Sender: FDA-Public Use
  Company Number: US-PFIZER INC-2018118678

PATIENT
  Age: 74 Year
  Sex: Female

DRUGS (1)
  1. VANCOMYCIN HCL [Suspect]
     Active Substance: VANCOMYCIN HYDROCHLORIDE
     Indication: INFECTION PROPHYLAXIS
     Dosage: 0.1 ML, UNK (1 MG/0.1 ML CONCENTRATION; MIXED IN THE FACILITY)
     Route: 047

REACTIONS (5)
  - Haemorrhagic vasculitis [Recovering/Resolving]
  - Drug hypersensitivity [Recovering/Resolving]
  - Retinal vasculitis [Recovering/Resolving]
  - Product use issue [Unknown]
  - Retinal ischaemia [Unknown]
